FAERS Safety Report 25159790 (Version 2)
Quarter: 2025Q2

REPORT INFORMATION
  Report Type: Spontaneous
  Country: US (occurrence: US)
  Receive Date: 20250404
  Receipt Date: 20250409
  Transmission Date: 20250716
  Serious: No
  Sender: LEO PHARM
  Company Number: US-LEO Pharma-378851

PATIENT
  Age: 52 Year
  Sex: Male
  Weight: 95 kg

DRUGS (6)
  1. ADBRY [Suspect]
     Active Substance: TRALOKINUMAB-LDRM
     Indication: Product used for unknown indication
  2. Prevacid DR solutabs [Concomitant]
     Indication: Product used for unknown indication
  3. BUPROPION HYDROCHLORIDE XL [Concomitant]
     Active Substance: BUPROPION HYDROCHLORIDE
     Indication: Product used for unknown indication
  4. PROAIR HFA [Concomitant]
     Active Substance: ALBUTEROL SULFATE
     Indication: Product used for unknown indication
  5. FLUOXETINE HYDROCHLORIDE [Concomitant]
     Active Substance: FLUOXETINE HYDROCHLORIDE
     Indication: Product used for unknown indication
  6. CLARITIN REDITABS [Concomitant]
     Active Substance: LORATADINE
     Indication: Product used for unknown indication

REACTIONS (2)
  - Drug intolerance [Unknown]
  - Treatment failure [Unknown]
